FAERS Safety Report 11687556 (Version 2)
Quarter: 2015Q4

REPORT INFORMATION
  Report Type: Report from Study
  Country: US (occurrence: US)
  Receive Date: 20151030
  Receipt Date: 20151221
  Transmission Date: 20160304
  Serious: Yes (Hospitalization)
  Sender: FDA-Public Use
  Company Number: US-VERTEX PHARMACEUTICALS-2015-004777

PATIENT
  Age: 32 Year
  Sex: Male
  Weight: 71 kg

DRUGS (42)
  1. TESTOSTERONE CYPIONATE. [Concomitant]
     Active Substance: TESTOSTERONE CYPIONATE
     Dosage: EVERY  1 WEEK-4 WEEK
     Route: 030
  2. MOMETASONE [Concomitant]
     Active Substance: MOMETASONE
     Dosage: 1 VIAL, BID
     Route: 045
  3. ACETAMINOPHEN. [Concomitant]
     Active Substance: ACETAMINOPHEN
     Dosage: EVERY 4 HOUR, PRN
     Route: 048
  4. POLYETHYLENE GLYCOL [Concomitant]
     Active Substance: POLYETHYLENE GLYCOLS
     Dosage: DAILY, PRN
     Route: 048
  5. MAGNESIUM OXIDE. [Concomitant]
     Active Substance: MAGNESIUM OXIDE
     Dosage: 1 DF, TID WITH MEALS
     Route: 048
  6. PROAIR HFA [Concomitant]
     Active Substance: ALBUTEROL SULFATE
  7. VITAMIN B12 [Concomitant]
     Active Substance: CYANOCOBALAMIN
     Dosage: EVERY 4 WEEK
     Route: 030
  8. GUAIFENESIN. [Concomitant]
     Active Substance: GUAIFENESIN
     Dosage: 1 DF, BID
     Route: 048
  9. SODIUM CHLORIDE. [Concomitant]
     Active Substance: SODIUM CHLORIDE
     Dosage: 10 ML, EVERY 4 WEEK
     Route: 042
  10. STERILE WATER [Concomitant]
     Active Substance: WATER
  11. GLUCOSE [Concomitant]
     Active Substance: DEXTROSE
     Dosage: UNK, PRN
     Route: 048
  12. AZITHROMYCIN [Concomitant]
     Active Substance: AZITHROMYCIN ANHYDROUS
  13. PULMOZYME [Concomitant]
     Active Substance: DORNASE ALFA
     Dosage: DAILY
     Route: 055
  14. PSEUDOEPHEDRINE [Concomitant]
     Active Substance: PSEUDOEPHEDRINE
     Dosage: 1 DF, BID
     Route: 048
  15. COLISTIMETHATE [Concomitant]
     Active Substance: COLISTIMETHATE SODIUM
     Dosage: 80 MG, UNK
     Route: 042
  16. HEPARIN FLUSH [Concomitant]
     Dosage: EVERY 4 WEEKS
     Route: 042
  17. MUPIROCIN. [Concomitant]
     Active Substance: MUPIROCIN
     Dosage: 1 VIAL, BID
     Route: 045
  18. ZOLPIDEM TARTRATE. [Concomitant]
     Active Substance: ZOLPIDEM TARTRATE
     Dosage: 1 DF, PRN
     Route: 048
  19. MELOXICAM. [Concomitant]
     Active Substance: MELOXICAM
     Dosage: 1 DF, DAILY
     Route: 048
  20. VITAMIN D3 [Concomitant]
     Active Substance: CHOLECALCIFEROL
     Dosage: 1 DF, UNK
     Route: 048
  21. ALBUTEROL. [Concomitant]
     Active Substance: ALBUTEROL
     Dosage: UNK, TID
     Route: 055
  22. NOVOLOG [Concomitant]
     Active Substance: INSULIN ASPART
     Dosage: 40 UNITS MAXIMUM PER DAY
  23. TOBRAMYCIN. [Concomitant]
     Active Substance: TOBRAMYCIN
     Dosage: 1 VIAL, BID
     Route: 045
  24. ORKAMBI [Suspect]
     Active Substance: IVACAFTOR\LUMACAFTOR
     Indication: CYSTIC FIBROSIS
     Dosage: 2 DF (400MG/250MG), BID
     Route: 048
     Dates: start: 20150820
  25. AQUADEKS [Concomitant]
     Dosage: 1 DF, BID
     Route: 048
  26. LORATADINE. [Concomitant]
     Active Substance: LORATADINE
     Dosage: 10 MG, DAILY
     Route: 048
  27. SODIUM CHLORIDE. [Concomitant]
     Active Substance: SODIUM CHLORIDE
     Dosage: 4 ML, BID
     Route: 055
  28. VITAMIN C [Concomitant]
     Active Substance: ASCORBIC ACID
     Dosage: 1 DF, BID
     Route: 048
  29. BUDESONIDE. [Concomitant]
     Active Substance: BUDESONIDE
     Route: 055
  30. LACTOBACILLUS [Concomitant]
     Active Substance: LACTOBACILLUS ACIDOPHILUS
     Dosage: UNK, TID WITH MEALS
     Route: 048
  31. CAYSTON [Concomitant]
     Active Substance: AZTREONAM
     Dosage: 75 MG, TID
  32. COLISTIMETHATE [Concomitant]
     Active Substance: COLISTIMETHATE SODIUM
     Dosage: 150 MG, BID
     Route: 055
  33. NEXIUM [Concomitant]
     Active Substance: ESOMEPRAZOLE MAGNESIUM
     Dosage: 40 MG, BID
     Route: 048
  34. DEXTROSE. [Concomitant]
     Active Substance: DEXTROSE
     Dosage: UNK, PRN
     Route: 042
  35. DIPHENHYDRAMINE. [Concomitant]
     Active Substance: DIPHENHYDRAMINE
     Dosage: EVERY 6 HOURS, PRN
     Route: 042
  36. ONDANSETRON [Concomitant]
     Active Substance: ONDANSETRON
     Dosage: EVERY 6 HOUR, PRN
     Route: 042
  37. SIMETHICONE (DIMETHICONE) [Concomitant]
     Active Substance: DIMETHICONE
     Dosage: EVERY 6 HOUR, PRN
  38. AMBIEN [Concomitant]
     Active Substance: ZOLPIDEM TARTRATE
     Dosage: 1 DF, NIGHTLY
     Route: 048
  39. MUCINEX [Concomitant]
     Active Substance: GUAIFENESIN
  40. ZENPEP [Concomitant]
     Active Substance: PANCRELIPASE\PANCRELIPASE AMYLASE\PANCRELIPASE LIPASE\PANCRELIPASE PROTEASE
     Dosage: 5 CAPSULES WITH MEALS AND 3 CAPSULES WITH SNACKS
     Route: 048
  41. CINNAMON. [Concomitant]
     Active Substance: CINNAMON
     Dosage: 1 DF, DAILY
     Route: 048
  42. PANTOPRAZOLE [Concomitant]
     Active Substance: PANTOPRAZOLE SODIUM
     Dosage: 1 DF,DAILY
     Route: 048

REACTIONS (1)
  - Infective pulmonary exacerbation of cystic fibrosis [Not Recovered/Not Resolved]

NARRATIVE: CASE EVENT DATE: 20151007
